FAERS Safety Report 4463471-0 (Version None)
Quarter: 2004Q3

REPORT INFORMATION
  Report Type: 
  Country: None (occurrence: None)
  Receive Date: 20040928
  Receipt Date: 20040910
  Transmission Date: 20050211
  Serious: Yes (Death)
  Sender: FDA-Public Use
  Company Number: DSA_24862_2004

PATIENT
  Age: 42 Year
  Sex: Male

DRUGS (12)
  1. ATIVAN [Suspect]
     Dates: start: 20040701, end: 20040701
  2. CITALOPRAM [Suspect]
  3. CLOPAZINE [Suspect]
     Dates: start: 20040701, end: 20040701
  4. MOVICOL [Suspect]
     Dates: start: 20040701, end: 20040701
  5. SINEMET [Suspect]
  6. ZOPLICONE [Suspect]
     Dates: start: 20040701, end: 20040701
  7. ATIVAN [Suspect]
     Dosage: 1 MG Q DAY PO
     Route: 048
     Dates: start: 20040701, end: 20040701
  8. CITALOPRAM [Suspect]
     Dosage: 40 MG
  9. CLOZAPINE [Suspect]
  10. MOVICOL [Suspect]
  11. SINEMET [Suspect]
  12. ZOPLICONE [Suspect]

REACTIONS (3)
  - CARDIAC DISORDER [None]
  - INTENTIONAL OVERDOSE [None]
  - SUICIDE ATTEMPT [None]
